FAERS Safety Report 6418360-9 (Version None)
Quarter: 2009Q4

REPORT INFORMATION
  Report Type: 
  Country: None (occurrence: None)
  Receive Date: 20091026
  Receipt Date: 20090819
  Transmission Date: 20100525
  Serious: No
  Sender: FDA-Public Use
  Company Number: US-000770

PATIENT
  Age: 62 Year
  Sex: Male

DRUGS (1)
  1. DEGARELIX 240 MG [Suspect]
     Indication: PROSTATE CANCER METASTATIC
     Dosage: (240 MG 1X/MONTH  SUBCUTANEOUS)
     Route: 058
     Dates: start: 20090709, end: 20090709

REACTIONS (4)
  - BLISTER [None]
  - INSOMNIA [None]
  - NAUSEA [None]
  - SKIN EXFOLIATION [None]
